FAERS Safety Report 6335744-8 (Version None)
Quarter: 2009Q3

REPORT INFORMATION
  Report Type: 
  Country: None (occurrence: None)
  Receive Date: 20090828
  Receipt Date: 20090818
  Transmission Date: 20100115
  Serious: Yes (Other)
  Sender: FDA-Public Use
  Company Number: 2009AP003375

PATIENT
  Age: 9 Month
  Sex: Male

DRUGS (1)
  1. CYCLOSPORINE [Suspect]

REACTIONS (3)
  - ACNE CYSTIC [None]
  - ACNE INFANTILE [None]
  - SKIN NODULE [None]
